FAERS Safety Report 17151487 (Version 1)
Quarter: 2019Q4

REPORT INFORMATION
  Report Type: Spontaneous
  Country: DE (occurrence: DE)
  Receive Date: 20191213
  Receipt Date: 20191213
  Transmission Date: 20200122
  Serious: Yes (Hospitalization)
  Sender: FDA-Public Use
  Company Number: DE-NOVOPROD-700728

PATIENT
  Age: 39 Year
  Sex: Female

DRUGS (1)
  1. NOVORAPID [Suspect]
     Active Substance: INSULIN ASPART
     Indication: TYPE 1 DIABETES MELLITUS
     Dosage: 32-40 U
     Route: 058

REACTIONS (4)
  - Blood glucose increased [Recovered/Resolved]
  - Myocardial infarction [Recovered/Resolved]
  - Product leakage [Unknown]
  - Weight decreased [Recovered/Resolved]
